FAERS Safety Report 8918284 (Version 2)
Quarter: 2012Q4

REPORT INFORMATION
  Report Type: 
  Country: US (occurrence: US)
  Receive Date: 20121120
  Receipt Date: 20121227
  Transmission Date: 20130627
  Serious: No
  Sender: FDA-Public Use
  Company Number: US-ASTRAZENECA-2012SE25468

PATIENT
  Age: 60 Year
  Sex: Male

DRUGS (3)
  1. NEXIUM [Suspect]
     Route: 048
  2. TOPROL XL [Suspect]
     Route: 048
  3. INSULIN [Concomitant]

REACTIONS (3)
  - Arthritis [Unknown]
  - Blood glucose increased [Unknown]
  - Diabetes mellitus [Unknown]
